FAERS Safety Report 18483595 (Version 1)
Quarter: 2020Q4

REPORT INFORMATION
  Report Type: Spontaneous
  Country: US (occurrence: US)
  Receive Date: 20201109
  Receipt Date: 20201109
  Transmission Date: 20210114
  Serious: No
  Sender: FDA-Public Use
  Company Number: US-ROCHE-2565760

PATIENT
  Age: 27 Year
  Sex: Female

DRUGS (1)
  1. PULMOZYME [Suspect]
     Active Substance: DORNASE ALFA
     Indication: PRODUCT USED FOR UNKNOWN INDICATION
     Dosage: 2.5 MG/2.5 ML, DAILY
     Route: 055
     Dates: start: 201901

REACTIONS (5)
  - Arthralgia [Unknown]
  - Lacrimation increased [Unknown]
  - Eye pruritus [Unknown]
  - Blood glucose decreased [Unknown]
  - Diarrhoea [Unknown]

NARRATIVE: CASE EVENT DATE: 20200106
